FAERS Safety Report 12251061 (Version 1)
Quarter: 2016Q2

REPORT INFORMATION
  Report Type: Spontaneous
  Country: US (occurrence: US)
  Receive Date: 20160410
  Receipt Date: 20160410
  Transmission Date: 20160815
  Serious: No
  Sender: FDA-Public Use
  Company Number: US-JNJFOC-20100603523

PATIENT
  Age: 54 Year
  Sex: Male
  Weight: 97.52 kg

DRUGS (4)
  1. PEPCID COMPLETE [Suspect]
     Active Substance: CALCIUM CARBONATE\FAMOTIDINE\MAGNESIUM HYDROXIDE
     Indication: ABDOMINAL DISCOMFORT
     Dosage: 3-4 TIMES
     Route: 048
     Dates: start: 20100601, end: 20100601
  2. PEPCID AC [Suspect]
     Active Substance: FAMOTIDINE
  3. PEPCID AC [Suspect]
     Active Substance: FAMOTIDINE
     Indication: GASTROOESOPHAGEAL REFLUX DISEASE
     Dates: start: 20100601
  4. PEPCID COMPLETE [Suspect]
     Active Substance: CALCIUM CARBONATE\FAMOTIDINE\MAGNESIUM HYDROXIDE
     Indication: DYSPEPSIA
     Dosage: 3-4 TIMES
     Route: 048
     Dates: start: 20100601, end: 20100601

REACTIONS (6)
  - Headache [Recovered/Resolved]
  - Product odour abnormal [Unknown]
  - Diarrhoea [Recovered/Resolved]
  - Incorrect dose administered [Recovered/Resolved]
  - Product quality issue [Unknown]
  - Abdominal pain upper [Recovered/Resolved]

NARRATIVE: CASE EVENT DATE: 20100601
